FAERS Safety Report 24404650 (Version 1)
Quarter: 2024Q4

REPORT INFORMATION
  Report Type: Spontaneous
  Country: UA (occurrence: UA)
  Receive Date: 20241007
  Receipt Date: 20241007
  Transmission Date: 20250115
  Serious: No
  Sender: ROCHE
  Company Number: UA-ROCHE-3519452

PATIENT
  Age: 47 Year
  Sex: Female

DRUGS (6)
  1. GAZYVA [Suspect]
     Active Substance: OBINUTUZUMAB
     Indication: Follicular lymphoma
     Dosage: EACH 28-DAY CYCLE
     Route: 041
  2. GAZYVA [Suspect]
     Active Substance: OBINUTUZUMAB
     Route: 041
  3. GAZYVA [Suspect]
     Active Substance: OBINUTUZUMAB
     Route: 041
  4. GAZYVA [Suspect]
     Active Substance: OBINUTUZUMAB
     Dosage: 90-MINUTE IV INFUSION
     Route: 042
  5. RITUXIMAB [Suspect]
     Active Substance: RITUXIMAB
     Indication: Follicular lymphoma
     Dosage: 2 ND CYCLE AT THE END OF /APR/2023?3RD CYCLE AT THE END OF /MAY/2023
     Route: 041
     Dates: start: 202303
  6. BENDAMUSTINE [Suspect]
     Active Substance: BENDAMUSTINE
     Indication: Follicular lymphoma
     Dosage: 2 ND CYCLE AT THE END OF /APR/2023?3RD CYCLE AT THE END OF /MAY/2023? FREQUENCY TEXT:ON DAY 1 AND 2
     Route: 042
     Dates: start: 202303

REACTIONS (5)
  - Infusion related reaction [Unknown]
  - Dysphonia [Unknown]
  - Dyspnoea [Unknown]
  - Dermatitis allergic [Unknown]
  - Face oedema [Unknown]
